FAERS Safety Report 6828649-7 (Version None)
Quarter: 2010Q3

REPORT INFORMATION
  Report Type: 
  Country: None (occurrence: None)
  Receive Date: 20100709
  Receipt Date: 20070214
  Transmission Date: 20110219
  Serious: No
  Sender: FDA-Public Use
  Company Number: US-PFIZER INC-2007013417

PATIENT
  Sex: Female
  Weight: 65.77 kg

DRUGS (8)
  1. CHANTIX [Suspect]
     Indication: SMOKING CESSATION THERAPY
     Dates: start: 20070207
  2. ANASTROZOLE [Concomitant]
  3. SYNTHROID [Concomitant]
  4. CENTRUM SILVER [Concomitant]
  5. CALCIUM CARBONATE [Concomitant]
  6. ACETYLSALICYLIC ACID [Concomitant]
  7. CLONAZEPAM [Concomitant]
  8. ETHYLENEDIAMINE [Concomitant]

REACTIONS (4)
  - DIZZINESS [None]
  - FEELING ABNORMAL [None]
  - NIGHT SWEATS [None]
  - TREMOR [None]
